FAERS Safety Report 23630310 (Version 15)
Quarter: 2025Q3

REPORT INFORMATION
  Report Type: Report from Study
  Country: CA (occurrence: CA)
  Receive Date: 20240314
  Receipt Date: 20250826
  Transmission Date: 20251021
  Serious: Yes (Hospitalization, Other)
  Sender: JOHNSON AND JOHNSON
  Company Number: CA-JNJFOC-20240124683

PATIENT
  Age: 11 Year
  Sex: Male
  Weight: 31.5 kg

DRUGS (12)
  1. REMICADE [Suspect]
     Active Substance: INFLIXIMAB
     Indication: Colitis ulcerative
     Route: 041
     Dates: start: 20200812
  2. REMICADE [Suspect]
     Active Substance: INFLIXIMAB
     Route: 041
     Dates: start: 20200812
  3. REMICADE [Suspect]
     Active Substance: INFLIXIMAB
     Route: 041
  4. REMICADE [Suspect]
     Active Substance: INFLIXIMAB
     Route: 041
  5. REMICADE [Suspect]
     Active Substance: INFLIXIMAB
     Route: 041
  6. REMICADE [Suspect]
     Active Substance: INFLIXIMAB
     Route: 041
  7. PROZAC [Suspect]
     Active Substance: FLUOXETINE HYDROCHLORIDE
     Indication: Obsessive-compulsive disorder
     Route: 048
  8. KETAMINE [Suspect]
     Active Substance: KETAMINE
     Indication: Anger
  9. BRIVARACETAM [Concomitant]
     Active Substance: BRIVARACETAM
     Indication: Seizure
     Route: 048
  10. BRIVARACETAM [Concomitant]
     Active Substance: BRIVARACETAM
     Route: 048
  11. RUFINAMIDE [Concomitant]
     Active Substance: RUFINAMIDE
     Indication: Product used for unknown indication
     Dosage: PREVIOUSLY ON RUFINAMIDE 400MG Q AM AND 600MG Q HS, NOW 600MG Q AM + PM, 600MG IN AM AND 800MG IN HS
     Route: 065
  12. RISPERIDONE [Concomitant]
     Active Substance: RISPERIDONE
     Indication: Anger

REACTIONS (14)
  - Status epilepticus [Unknown]
  - Atonic seizures [Not Recovered/Not Resolved]
  - Colitis ulcerative [Recovered/Resolved]
  - Petit mal epilepsy [Unknown]
  - Anger [Unknown]
  - Physical examination [Unknown]
  - Epilepsy [Not Recovered/Not Resolved]
  - Underdose [Unknown]
  - Fall [Recovered/Resolved]
  - Skin laceration [Recovering/Resolving]
  - Diarrhoea [Recovered/Resolved]
  - Swelling face [Unknown]
  - Obsessive-compulsive disorder [Recovering/Resolving]
  - Off label use [Unknown]

NARRATIVE: CASE EVENT DATE: 20240430
